APPROVED DRUG PRODUCT: LEVETIRACETAM IN SODIUM CHLORIDE
Active Ingredient: LEVETIRACETAM
Strength: 1.5GM/100ML (15MG/ML)
Dosage Form/Route: INJECTABLE;INTRAVENOUS
Application: A207160 | Product #003 | TE Code: AP
Applicant: EUGIA PHARMA SPECIALITIES LTD
Approved: Jan 4, 2017 | RLD: No | RS: No | Type: RX